FAERS Safety Report 23239209 (Version 1)
Quarter: 2023Q4

REPORT INFORMATION
  Report Type: Spontaneous
  Country: US (occurrence: None)
  Receive Date: 20231129
  Receipt Date: 20231129
  Transmission Date: 20240109
  Serious: No
  Sender: FDA-Public Use
  Company Number: 2023A263193

PATIENT

DRUGS (2)
  1. CALQUENCE [Suspect]
     Active Substance: ACALABRUTINIB
     Indication: Nodal marginal zone B-cell lymphoma
     Route: 048
     Dates: start: 202208
  2. GAZYVA [Suspect]
     Active Substance: OBINUTUZUMAB
     Indication: Nodal marginal zone B-cell lymphoma
     Dosage: UNKNOWN
     Route: 042

REACTIONS (4)
  - Headache [Unknown]
  - Diarrhoea [Unknown]
  - Fatigue [Unknown]
  - Pruritus [Unknown]

NARRATIVE: CASE EVENT DATE: 20220101
